FAERS Safety Report 19614714 (Version 1)
Quarter: 2021Q3

REPORT INFORMATION
  Report Type: Spontaneous
  Country: SI (occurrence: SI)
  Receive Date: 20210727
  Receipt Date: 20210727
  Transmission Date: 20211014
  Serious: Yes (Death, Hospitalization, Other)
  Sender: FDA-Public Use
  Company Number: SI-BAYER-2021-179670

PATIENT
  Age: 64 Year
  Sex: Male

DRUGS (7)
  1. SORAFENIB (RAF KINASE INHIBITOR) [Suspect]
     Active Substance: SORAFENIB
     Indication: THYROID NEOPLASM
     Dosage: DAILY DOSE 400 MG
     Route: 048
  2. THIAMAZOLE [Concomitant]
     Active Substance: METHIMAZOLE
     Dosage: 2 WEEKS
  3. CYCLOPHOSPHAMIDE. [Concomitant]
     Active Substance: CYCLOPHOSPHAMIDE
  4. SORAFENIB (RAF KINASE INHIBITOR) [Suspect]
     Active Substance: SORAFENIB
     Indication: THYROID NEOPLASM
     Dosage: 400 MG, BID
     Route: 048
     Dates: start: 201904
  5. SORAFENIB (RAF KINASE INHIBITOR) [Suspect]
     Active Substance: SORAFENIB
     Indication: BASEDOW^S DISEASE
     Dosage: DAILY DOSE 200 MG
     Route: 048
  6. DOXORUBICIN [Concomitant]
     Active Substance: DOXORUBICIN
     Dosage: 20 MG ONCE WEELY
     Route: 048
  7. VINCRISTINE [Concomitant]
     Active Substance: VINCRISTINE
     Dosage: UNK

REACTIONS (15)
  - Pleural effusion [None]
  - Weight decreased [None]
  - Bone pain [None]
  - Restlessness [None]
  - Off label use [None]
  - Cardiopulmonary failure [Fatal]
  - Pain [None]
  - Hypertension [None]
  - Adverse drug reaction [None]
  - Decreased appetite [None]
  - Thyroid cancer [None]
  - Taste disorder [None]
  - General physical health deterioration [None]
  - Fatigue [None]
  - Dyspnoea [None]

NARRATIVE: CASE EVENT DATE: 201905
